FAERS Safety Report 5737060-1 (Version None)
Quarter: 2008Q2

REPORT INFORMATION
  Report Type: 
  Country: None (occurrence: None)
  Receive Date: 20080512
  Receipt Date: 20080512
  Transmission Date: 20081010
  Serious: Yes (Other)
  Sender: FDA-Public Use
  Company Number: None

PATIENT
  Sex: Female

DRUGS (1)
  1. LYRICA [Suspect]
     Indication: ABDOMINAL PAIN
     Dosage: 100 MG BID PO
     Route: 048
     Dates: start: 20080108, end: 20080201

REACTIONS (7)
  - ANXIETY [None]
  - DRUG WITHDRAWAL SYNDROME [None]
  - FLIGHT OF IDEAS [None]
  - FLUSHING [None]
  - HEADACHE [None]
  - INSOMNIA [None]
  - PANIC ATTACK [None]
